FAERS Safety Report 12138079 (Version 5)
Quarter: 2016Q2

REPORT INFORMATION
  Report Type: Report from Study
  Country: US (occurrence: US)
  Receive Date: 20160302
  Receipt Date: 20160414
  Transmission Date: 20160815
  Serious: Yes (Hospitalization)
  Sender: FDA-Public Use
  Company Number: US-GILEAD-2016-0201229

PATIENT
  Age: 76 Year
  Sex: Male

DRUGS (3)
  1. COUMADIN [Concomitant]
     Active Substance: WARFARIN SODIUM
  2. SILDENAFIL. [Concomitant]
     Active Substance: SILDENAFIL
  3. AMBRISENTAN [Suspect]
     Active Substance: AMBRISENTAN
     Indication: PRODUCT USED FOR UNKNOWN INDICATION
     Dosage: 10 MG, QD
     Route: 065
     Dates: start: 20110406

REACTIONS (5)
  - Arthropathy [Unknown]
  - Anxiety [Unknown]
  - Headache [Not Recovered/Not Resolved]
  - Nausea [Not Recovered/Not Resolved]
  - Platelet count decreased [Not Recovered/Not Resolved]
